FAERS Safety Report 8252288-7 (Version None)
Quarter: 2012Q2

REPORT INFORMATION
  Report Type: 
  Country: None (occurrence: None)
  Receive Date: 20120402
  Receipt Date: 20111004
  Transmission Date: 20120825
  Serious: No
  Sender: FDA-Public Use
  Company Number: US-ABBOTT-11P-163-0862635-00

PATIENT
  Sex: Male
  Weight: 83.99 kg

DRUGS (4)
  1. LEXAPRO [Concomitant]
     Indication: DEPRESSION
  2. ANDROGEL [Suspect]
     Indication: BLOOD TESTOSTERONE DECREASED
     Dosage: PACKETS
     Route: 061
     Dates: start: 20100101, end: 20100101
  3. ASPIRIN [Concomitant]
     Indication: PRODUCT USED FOR UNKNOWN INDICATION
  4. ANDROGEL [Suspect]
     Dosage: LOT # AND EXPIRATION UNAVAILABLE.
     Route: 061
     Dates: start: 20100101

REACTIONS (1)
  - DEPRESSION [None]
